FAERS Safety Report 4658769-7 (Version None)
Quarter: 2005Q2

REPORT INFORMATION
  Report Type: 
  Country: None (occurrence: None)
  Receive Date: 20050509
  Receipt Date: 20050425
  Transmission Date: 20051028
  Serious: Yes (Death, Hospitalization, Other)
  Sender: FDA-Public Use
  Company Number: GBS050316885

PATIENT
  Age: 28 Year
  Sex: Female
  Weight: 140 kg

DRUGS (3)
  1. OLANZAPINE [Suspect]
     Indication: SCHIZOPHRENIA, PARANOID TYPE
     Dosage: 20 MG
     Dates: start: 19970101
  2. ZOPICLONE (ZOPLICLONE) [Concomitant]
  3. ANTIBIOTICS [Concomitant]

REACTIONS (9)
  - ABNORMAL BEHAVIOUR [None]
  - ASPHYXIA [None]
  - CONFUSIONAL STATE [None]
  - CYANOSIS [None]
  - INFECTION [None]
  - NEGLECT OF PERSONAL APPEARANCE [None]
  - PULMONARY EMBOLISM [None]
  - SNORING [None]
  - WEIGHT INCREASED [None]
